FAERS Safety Report 4918699-X (Version None)
Quarter: 2006Q1

REPORT INFORMATION
  Report Type: 
  Country: None (occurrence: None)
  Receive Date: 20060222
  Receipt Date: 20060215
  Transmission Date: 20060701
  Serious: Yes (Hospitalization)
  Sender: FDA-Public Use
  Company Number: FR-AVENTIS-200610638FR

PATIENT
  Age: 46 Year
  Sex: Male

DRUGS (11)
  1. LASILIX [Suspect]
     Dosage: DOSE UNIT: MILLIGRAM PER MILLILITRE
     Route: 042
     Dates: start: 20051121, end: 20051126
  2. AUGMENTIN '125' [Suspect]
     Route: 042
     Dates: start: 20051120, end: 20051124
  3. PERFALGAN [Suspect]
     Route: 042
     Dates: start: 20051118, end: 20051124
  4. LOXEN [Suspect]
     Route: 042
     Dates: start: 20051121, end: 20051129
  5. DIPRIVAN [Suspect]
     Route: 042
     Dates: start: 20051120, end: 20051122
  6. OMEPRAZOLE [Suspect]
     Dosage: DOSE UNIT: UNITS
     Route: 042
     Dates: start: 20051115, end: 20051126
  7. MIDAZOLAM HCL [Concomitant]
     Dates: start: 20051115, end: 20051201
  8. PERFALGAN [Concomitant]
     Route: 042
     Dates: start: 20051118, end: 20051124
  9. MORPHINE [Concomitant]
     Dates: start: 20051120, end: 20051206
  10. LOVENOX [Concomitant]
     Route: 042
     Dates: start: 20051124, end: 20051208
  11. GENTAMYCIN SULFATE [Concomitant]
     Dates: start: 20051120, end: 20051122

REACTIONS (8)
  - BACTERIAL INFECTION [None]
  - BLOOD PRESSURE SYSTOLIC INCREASED [None]
  - HEPATIC ENZYME INCREASED [None]
  - HEPATIC HAEMATOMA [None]
  - HEPATOMEGALY [None]
  - HYPERBILIRUBINAEMIA [None]
  - LIVER FUNCTION TEST ABNORMAL [None]
  - PERITONEAL EFFUSION [None]
